FAERS Safety Report 10198752 (Version 1)
Quarter: 2014Q2

REPORT INFORMATION
  Report Type: Spontaneous
  Country: DE (occurrence: DE)
  Receive Date: 20140527
  Receipt Date: 20140527
  Transmission Date: 20141212
  Serious: Yes (Congenital Anomaly)
  Sender: FDA-Public Use
  Company Number: DE-TEVA-482584GER

PATIENT
  Age: 0 Year
  Sex: Male

DRUGS (5)
  1. LAMOTRIGIN [Suspect]
     Route: 064
  2. FOLSAEURE [Concomitant]
     Route: 064
  3. PENHEXAL [Concomitant]
     Route: 064
  4. MIFEGYNE [Concomitant]
     Route: 064
  5. CYTOTEC [Concomitant]
     Route: 064

REACTIONS (5)
  - Ventricular septal defect [Not Recovered/Not Resolved]
  - Congenital tricuspid valve atresia [Not Recovered/Not Resolved]
  - Congenital pulmonary valve atresia [Not Recovered/Not Resolved]
  - Double outlet right ventricle [Not Recovered/Not Resolved]
  - Patent ductus arteriosus [Not Recovered/Not Resolved]
